FAERS Safety Report 24419013 (Version 2)
Quarter: 2024Q4

REPORT INFORMATION
  Report Type: Report from Study
  Country: US (occurrence: US)
  Receive Date: 20241009
  Receipt Date: 20241018
  Transmission Date: 20250115
  Serious: No
  Sender: ROCHE
  Company Number: US-ROCHE-3227223

PATIENT
  Age: 53 Year
  Sex: Female

DRUGS (2)
  1. ACTIVASE [Suspect]
     Active Substance: ALTEPLASE
     Indication: Cerebral infarction
     Dosage: VIAL (DATE OF SERVICE: 17/OCT/2022)?100 MG ONCE
     Route: 065
  2. CATHFLO ACTIVASE [Suspect]
     Active Substance: ALTEPLASE
     Indication: Vascular graft stenosis
     Dosage: VIAL?DATE OF SERVICE IS 12/AUG/2023
     Route: 065
     Dates: start: 20231208

REACTIONS (2)
  - Off label use [Unknown]
  - No adverse event [Unknown]
